FAERS Safety Report 9187935 (Version 1)
Quarter: 2013Q1

REPORT INFORMATION
  Report Type: Spontaneous
  Country: US (occurrence: US)
  Receive Date: 20130325
  Receipt Date: 20130325
  Transmission Date: 20140127
  Serious: No
  Sender: FDA-Public Use
  Company Number: US-MYLANLABS-2012S1019148

PATIENT
  Age: 57 Year
  Sex: Female

DRUGS (13)
  1. FENTANYL TRANSDERMAL SYSTEM [Suspect]
     Indication: ARTHRALGIA
     Dosage: Q72H
     Route: 062
     Dates: start: 20120903, end: 20120904
  2. JANUVIA [Concomitant]
     Indication: DIABETES MELLITUS
  3. XANAX [Concomitant]
     Indication: ANXIETY
  4. ZETIA [Concomitant]
     Indication: BLOOD CHOLESTEROL INCREASED
     Route: 048
  5. ASPIRIN [Concomitant]
     Route: 048
  6. ACCUPRIL [Concomitant]
     Indication: BLOOD PRESSURE INCREASED
     Route: 048
  7. VALIUM [Concomitant]
     Indication: FIBROMYALGIA
     Route: 048
  8. SYNTHROID [Concomitant]
     Indication: HYPOTHYROIDISM
     Route: 048
  9. PAXIL [Concomitant]
     Route: 048
  10. CORGARD [Concomitant]
     Route: 048
  11. PROTONIX [Concomitant]
     Route: 048
  12. TRAMADOL [Concomitant]
     Indication: PAIN
  13. INSULIN [Concomitant]
     Indication: DIABETES MELLITUS

REACTIONS (7)
  - Heart rate increased [Recovering/Resolving]
  - Blood pressure increased [Recovering/Resolving]
  - Headache [Recovering/Resolving]
  - Drug withdrawal syndrome [Recovering/Resolving]
  - Panic attack [Recovering/Resolving]
  - Agitation [Recovering/Resolving]
  - Erythema [Recovering/Resolving]
